FAERS Safety Report 9642068 (Version 2)
Quarter: 2013Q4

REPORT INFORMATION
  Report Type: Spontaneous
  Country: GB (occurrence: GB)
  Receive Date: 20131023
  Receipt Date: 20131119
  Transmission Date: 20140711
  Serious: Yes (Other)
  Sender: FDA-Public Use
  Company Number: PHHY2013GB115531

PATIENT
  Age: 66 Year
  Sex: Male
  Weight: 76 kg

DRUGS (7)
  1. BISOPROLOL [Suspect]
     Indication: CARDIAC DISORDER
     Dosage: 2.5 MG, UNK
     Route: 048
     Dates: end: 20130209
  2. SEROXAT [Suspect]
     Indication: BIPOLAR I DISORDER
     Dosage: 20 MG (LONG TERM. INCREASED FROM 20MG TO 40MG ON 11/02/2013)
     Dates: start: 2000
  3. SEROXAT [Suspect]
     Indication: DEPRESSION
     Dosage: 40 MG DAILY
  4. ASPIRIN [Concomitant]
     Dosage: 75 MG, UNK
     Dates: start: 20121220, end: 20130319
  5. ISOSORBIDE [Concomitant]
     Dosage: 10 MG, UNK
     Dates: start: 20121220, end: 20130210
  6. SIMVASTATIN [Concomitant]
     Indication: CARDIAC DISORDER
     Dosage: 40 MG, UNK
     Route: 048
     Dates: start: 20121220, end: 20130209
  7. ZOPICLONE [Concomitant]
     Dosage: 3.75 MG, UNK
     Dates: start: 20121220, end: 20130210

REACTIONS (8)
  - Mental disorder [Recovered/Resolved]
  - Drug interaction [Unknown]
  - Depression suicidal [Recovered/Resolved]
  - Suicide attempt [Recovered/Resolved]
  - Myocardial ischaemia [Unknown]
  - Anxiety [Recovered/Resolved]
  - Agitation [Recovered/Resolved]
  - Angina pectoris [Unknown]
